FAERS Safety Report 10160285 (Version 1)
Quarter: 2014Q2

REPORT INFORMATION
  Report Type: Report from Study
  Country: US (occurrence: US)
  Receive Date: 20140508
  Receipt Date: 20140508
  Transmission Date: 20141212
  Serious: Yes (Hospitalization, Other)
  Sender: FDA-Public Use
  Company Number: US-ABBVIE-14P-163-1232965-00

PATIENT
  Sex: Female

DRUGS (3)
  1. HUMIRA [Suspect]
     Indication: COLITIS ULCERATIVE
     Dates: start: 2013, end: 201312
  2. HUMIRA [Suspect]
     Dates: start: 201402
  3. VICTOZA [Concomitant]
     Indication: DIABETES MELLITUS

REACTIONS (4)
  - Intervertebral disc protrusion [Recovering/Resolving]
  - Femoral nerve injury [Recovering/Resolving]
  - Monoplegia [Recovering/Resolving]
  - Injection site pain [Unknown]
